FAERS Safety Report 6417537-6 (Version None)
Quarter: 2009Q4

REPORT INFORMATION
  Report Type: 
  Country: None (occurrence: None)
  Receive Date: 20091026
  Receipt Date: 20091013
  Transmission Date: 20100525
  Serious: Yes (Other)
  Sender: FDA-Public Use
  Company Number: 2009-04305

PATIENT
  Age: 37 Year
  Sex: Male

DRUGS (2)
  1. VELCADE [Suspect]
     Indication: DRUG USE FOR UNKNOWN INDICATION
  2. THALIDOMIDE [Concomitant]

REACTIONS (3)
  - DRUG INEFFECTIVE [None]
  - PARAPROTEINAEMIA [None]
  - PRODUCT QUALITY ISSUE [None]
